FAERS Safety Report 7554742 (Version 6)
Quarter: 2013Q1

REPORT INFORMATION
  Report Type: Spontaneous
  Country: US (occurrence: US)
  Receive Date: 20100826
  Receipt Date: 20130218
  Transmission Date: 20140127
  Serious: Yes (Hospitalization, Other)
  Sender: FDA-Public Use
  Company Number: US-ASTRAZENECA-2010SE38569

PATIENT
  Age: 69 Year
  Sex: Female
  Weight: 66.2 kg

DRUGS (4)
  1. SYMBICORT PMDI [Suspect]
     Indication: EMPHYSEMA
     Dosage: TOTAL DAILY DOSE 640 MCG, TWO TIMES A DAY
     Route: 055
  2. SYMBICORT PMDI [Suspect]
     Indication: EMPHYSEMA
     Dosage: 160/4.5 BID
     Route: 055
  3. COMBIVENT [Concomitant]
     Indication: EMPHYSEMA
  4. DALIRESP [Concomitant]
     Indication: CHRONIC OBSTRUCTIVE PULMONARY DISEASE

REACTIONS (7)
  - Dyspnoea [Unknown]
  - Foot fracture [Unknown]
  - Upper respiratory tract infection [Unknown]
  - Malaise [Unknown]
  - Emphysema [Unknown]
  - Infection [Unknown]
  - Pneumonia [Unknown]
